FAERS Safety Report 22534277 (Version 1)
Quarter: 2023Q2

REPORT INFORMATION
  Report Type: Spontaneous
  Country: ES (occurrence: ES)
  Receive Date: 20230608
  Receipt Date: 20230608
  Transmission Date: 20230722
  Serious: Yes (Other)
  Sender: FDA-Public Use
  Company Number: None

PATIENT
  Age: 74 Year
  Sex: Female

DRUGS (16)
  1. ACETAMINOPHEN\TRAMADOL [Suspect]
     Active Substance: ACETAMINOPHEN\TRAMADOL
     Indication: Myalgia
     Dosage: 1 DOSAGE FORM, EVERY 8 HRS
     Route: 048
     Dates: start: 20090304, end: 20230414
  2. DEFLAZACORT [Concomitant]
     Active Substance: DEFLAZACORT
     Indication: Spinal osteoarthritis
     Dosage: 6 MILLIGRAM, 1/DAY
     Route: 048
     Dates: start: 20200529
  3. ENALAPRIL/HIDROCLOROTIAZIDA ACTAVIS [Concomitant]
     Indication: Hypertension
     Dosage: 20 MILLIGRAM, 1/DAY
     Route: 048
     Dates: start: 20130905
  4. CHOLECALCIFEROL [Concomitant]
     Active Substance: CHOLECALCIFEROL
     Indication: Spinal osteoarthritis
     Dosage: 25000 INTERNATIONAL UNIT
     Route: 048
     Dates: start: 20220701
  5. BETAMETHASONE DIPROPIONATE [Concomitant]
     Active Substance: BETAMETHASONE DIPROPIONATE
     Indication: Neck pain
     Dosage: 1 DOSAGE FORM, 1/DAY
     Route: 061
     Dates: start: 20170818
  6. ESCITALOPRAM NORMON [Concomitant]
     Indication: Anxiety
     Dosage: 20 MILLIGRAM, 1/DAY
     Route: 048
     Dates: start: 20191009
  7. CALCIUM\CHOLECALCIFEROL [Concomitant]
     Active Substance: CALCIUM\CHOLECALCIFEROL
     Indication: Dyspepsia
     Dosage: 25 MILLIGRAM
     Route: 048
     Dates: start: 20210423
  8. CONDROSAN [Concomitant]
     Indication: Myalgia
     Dosage: 400 MILLIGRAM
     Route: 048
     Dates: start: 20130305
  9. POTASSIUM CITRATE [Concomitant]
     Active Substance: POTASSIUM CITRATE
     Indication: Nephrolithiasis
     Dosage: 1 DOSAGE FORM, 3/DAY
     Route: 048
     Dates: start: 20080711
  10. OMEPRAZOL PENSA [OMEPRAZOLE MAGNESIUM] [Concomitant]
     Indication: Dyspepsia
     Dosage: 20 MILLIGRAM, 1/DAY
     Route: 048
     Dates: start: 20200312
  11. PARACETAMOL KERN PHARMA [Concomitant]
     Indication: Spinal osteoarthritis
     Dosage: 1 GRAM, 3/DAY
     Route: 048
     Dates: start: 20230427, end: 20230506
  12. LORAZEPAM [Concomitant]
     Active Substance: LORAZEPAM
     Indication: Anxiety
     Dosage: 1 MILLIGRAM, 2/DAY
     Route: 048
     Dates: start: 20130207
  13. SIMVASTATIN [Concomitant]
     Active Substance: SIMVASTATIN
     Indication: Type IIa hyperlipidaemia
     Dosage: 10 MILLIGRAM, 1/DAY
     Route: 048
     Dates: start: 20200709
  14. FLUOXETINE HYDROCHLORIDE [Concomitant]
     Active Substance: FLUOXETINE HYDROCHLORIDE
     Indication: Anxiety
     Dosage: 100 MILLIGRAM, 1/DAY
     Route: 048
     Dates: start: 20190205
  15. TALTZ [Concomitant]
     Active Substance: IXEKIZUMAB
     Indication: Psoriasis
     Dosage: 80 MILLIGRAM, 1/MONTH
     Route: 058
     Dates: start: 20220329
  16. ALOGLIPTIN BENZOATE\METFORMIN HYDROCHLORIDE [Concomitant]
     Active Substance: ALOGLIPTIN BENZOATE\METFORMIN HYDROCHLORIDE
     Indication: Type 2 diabetes mellitus
     Dosage: 1 DOSAGE FORM, 1/DAY
     Route: 048
     Dates: start: 20190410

REACTIONS (1)
  - Oesophageal achalasia [Unknown]

NARRATIVE: CASE EVENT DATE: 20230505
